FAERS Safety Report 18136301 (Version 1)
Quarter: 2020Q3

REPORT INFORMATION
  Report Type: Spontaneous
  Country: DE (occurrence: DE)
  Receive Date: 20200811
  Receipt Date: 20200811
  Transmission Date: 20201103
  Serious: Yes (Hospitalization)
  Sender: FDA-Public Use
  Company Number: DE-MYLANLABS-2020M1069587

PATIENT
  Age: 3 Decade
  Sex: Female
  Weight: 86 kg

DRUGS (1)
  1. RISPERIDONE. [Suspect]
     Active Substance: RISPERIDONE
     Indication: PRODUCT USED FOR UNKNOWN INDICATION
     Dosage: 4 MILLIGRAM, QD
     Route: 048
     Dates: start: 20200710, end: 20200722

REACTIONS (2)
  - Insomnia [Unknown]
  - Panic reaction [Unknown]

NARRATIVE: CASE EVENT DATE: 20200710
